FAERS Safety Report 24861486 (Version 1)
Quarter: 2025Q1

REPORT INFORMATION
  Report Type: Spontaneous
  Country: RO (occurrence: RO)
  Receive Date: 20250120
  Receipt Date: 20250120
  Transmission Date: 20250409
  Serious: Yes (Other)
  Sender: TAKEDA
  Company Number: None

PATIENT
  Age: 32 Year
  Sex: Female

DRUGS (3)
  1. BRINTELLIX [Suspect]
     Active Substance: VORTIOXETINE HYDROBROMIDE
     Indication: Major depression
     Dosage: 5 MILLIGRAM, QD
     Dates: start: 20240919
  2. BRINTELLIX [Suspect]
     Active Substance: VORTIOXETINE HYDROBROMIDE
     Indication: Anxiety
     Dosage: 10 MILLIGRAM, QD
     Dates: start: 20241027, end: 20241029
  3. XANAX [Concomitant]
     Active Substance: ALPRAZOLAM
     Indication: Product used for unknown indication

REACTIONS (14)
  - Suicidal ideation [Recovering/Resolving]
  - Depression [Recovering/Resolving]
  - Negative thoughts [Recovering/Resolving]
  - Thinking abnormal [Recovering/Resolving]
  - Insomnia [Recovering/Resolving]
  - Abnormal dreams [Recovering/Resolving]
  - Fear [Recovering/Resolving]
  - Self-injurious ideation [Recovering/Resolving]
  - Impulse-control disorder [Recovering/Resolving]
  - Crying [Recovering/Resolving]
  - Anxiety [Recovering/Resolving]
  - Disturbance in attention [Recovering/Resolving]
  - Feeling abnormal [Recovering/Resolving]
  - Apathy [Recovering/Resolving]

NARRATIVE: CASE EVENT DATE: 20240924
